FAERS Safety Report 4730800-X (Version None)
Quarter: 2005Q3

REPORT INFORMATION
  Report Type: 
  Country: None (occurrence: None)
  Receive Date: 20050728
  Receipt Date: 20041103
  Transmission Date: 20060218
  Serious: Yes (Hospitalization)
  Sender: FDA-Public Use
  Company Number: TRP_0029_2004

PATIENT
  Age: 45 Year
  Sex: Female
  Weight: 132.4503 kg

DRUGS (10)
  1. RIBASPHERE [Suspect]
     Indication: HEPATITIS C
     Dosage: 1200 MG QDAY PO
     Route: 048
     Dates: start: 20040723
  2. PEG-INTRON [Suspect]
     Indication: HEPATITIS C
     Dates: start: 20040723
  3. ADVAIR DISKUS 100/50 [Concomitant]
  4. AMARYL [Concomitant]
  5. DIOVAN HCT [Concomitant]
  6. FLONASE [Concomitant]
  7. METHADONE HCL [Concomitant]
  8. XANAX [Concomitant]
  9. ZYRTEC [Concomitant]
  10. LEXAPRO [Concomitant]

REACTIONS (1)
  - ANAEMIA [None]
